FAERS Safety Report 9834860 (Version 1)
Quarter: 2014Q1

REPORT INFORMATION
  Report Type: Spontaneous
  Country: US (occurrence: US)
  Receive Date: 20140122
  Receipt Date: 20140122
  Transmission Date: 20141002
  Serious: Yes (Other)
  Sender: FDA-Public Use
  Company Number: US-TEVA-457754USA

PATIENT
  Sex: Male

DRUGS (2)
  1. BACLOFEN [Suspect]
  2. KLONOPIN [Suspect]

REACTIONS (6)
  - Withdrawal syndrome [Unknown]
  - Anxiety [Unknown]
  - Palpitations [Unknown]
  - Depression [Unknown]
  - Overdose [Unknown]
  - Drug administration error [Unknown]
